FAERS Safety Report 11793247 (Version 1)
Quarter: 2015Q4

REPORT INFORMATION
  Report Type: Spontaneous
  Country: US (occurrence: US)
  Receive Date: 20151202
  Receipt Date: 20151202
  Transmission Date: 20160305
  Serious: No
  Sender: FDA-Public Use
  Company Number: US-PFIZER INC-2015403468

PATIENT
  Age: 38 Year
  Sex: Male
  Weight: 79 kg

DRUGS (3)
  1. VIAGRA [Suspect]
     Active Substance: SILDENAFIL CITRATE
     Indication: SPINAL FRACTURE
     Dosage: UNK
     Dates: start: 2015
  2. CIALIS [Suspect]
     Active Substance: TADALAFIL
     Indication: SPINAL FRACTURE
     Dosage: ONE TABLET WHEN NEEDED
     Dates: start: 2015
  3. HYDROCODONE [Concomitant]
     Active Substance: HYDROCODONE
     Indication: PAIN
     Dosage: 10 MG, 3X/DAY
     Route: 048
     Dates: start: 2010

REACTIONS (1)
  - Drug ineffective for unapproved indication [Unknown]

NARRATIVE: CASE EVENT DATE: 2015
